FAERS Safety Report 4284416-2 (Version None)
Quarter: 2004Q1

REPORT INFORMATION
  Report Type: 
  Country: None (occurrence: None)
  Receive Date: 20040203
  Receipt Date: 20031125
  Transmission Date: 20041129
  Serious: Yes (Other)
  Sender: FDA-Public Use
  Company Number: PHHO2003CA15230

PATIENT
  Age: 74 Year
  Sex: Female

DRUGS (6)
  1. ZELNORM [Suspect]
     Dosage: 6 MG, QD
     Route: 048
     Dates: start: 20031113
  2. DIOVAN [Concomitant]
     Dosage: 80 UNK, UNK
  3. SYNTHROID [Concomitant]
     Dosage: .05 UNK, UNK
  4. LOSEC I.V. [Concomitant]
     Dosage: 20 UNK, UNK
  5. ATENOLOL [Concomitant]
     Dosage: 25 MG, UNK
  6. ATIVAN [Concomitant]

REACTIONS (6)
  - ABDOMINAL PAIN LOWER [None]
  - CONSTIPATION [None]
  - DIVERTICULITIS [None]
  - DRUG INEFFECTIVE [None]
  - NAUSEA [None]
  - UTERINE MALPOSITION [None]
